FAERS Safety Report 20046079 (Version 1)
Quarter: 2021Q4

REPORT INFORMATION
  Report Type: Spontaneous
  Country: US (occurrence: None)
  Receive Date: 20211108
  Receipt Date: 20211108
  Transmission Date: 20220303
  Serious: No
  Sender: FDA-Public Use
  Company Number: None

PATIENT

DRUGS (2)
  1. OCTREOTIDE ACETATE [Suspect]
     Active Substance: OCTREOTIDE ACETATE
  2. HEPATITIS B VIRUS HBSAG SURFACE PROTEIN ANTIGEN [Suspect]
     Active Substance: HEPATITIS B VIRUS HBSAG SURFACE PROTEIN ANTIGEN

REACTIONS (6)
  - Intercepted product administration error [None]
  - Wrong product stored [None]
  - Product packaging issue [None]
  - Product distribution issue [None]
  - Product communication issue [None]
  - Contraindication to medical treatment [None]
